FAERS Safety Report 19905797 (Version 4)
Quarter: 2022Q2

REPORT INFORMATION
  Report Type: Report from Study
  Country: PL (occurrence: PL)
  Receive Date: 20210930
  Receipt Date: 20220527
  Transmission Date: 20220720
  Serious: Yes (Life-Threatening, Hospitalization, Other)
  Sender: FDA-Public Use
  Company Number: PL-BOEHRINGERINGELHEIM-2020-BI-014222

PATIENT
  Age: 61 Year
  Sex: Female
  Weight: 65 kg

DRUGS (23)
  1. NINTEDANIB [Suspect]
     Active Substance: NINTEDANIB
     Indication: Systemic scleroderma
     Route: 048
     Dates: start: 20180926
  2. NINTEDANIB [Suspect]
     Active Substance: NINTEDANIB
     Route: 048
     Dates: start: 20200127
  3. PERINDOPRILUM ARGININUM [Concomitant]
     Indication: Hypertension
     Route: 048
     Dates: start: 20170526
  4. PANTOPRAZOLE [Concomitant]
     Active Substance: PANTOPRAZOLE
     Indication: Gastritis
     Route: 048
     Dates: start: 20200125, end: 20200131
  5. PANTOPRAZOLE [Concomitant]
     Active Substance: PANTOPRAZOLE
     Indication: Prophylaxis
     Route: 048
     Dates: start: 20210131
  6. URAPIDIL [Concomitant]
     Active Substance: URAPIDIL
     Indication: Hypertension
     Route: 042
     Dates: start: 20200125, end: 20200125
  7. ESTAZOLAM [Concomitant]
     Active Substance: ESTAZOLAM
     Indication: Sleep disorder
     Route: 048
     Dates: start: 20200128, end: 20200131
  8. HYDROXYZINE HYDROCHLORIDE [Concomitant]
     Active Substance: HYDROXYZINE HYDROCHLORIDE
     Indication: Sleep disorder
     Route: 048
     Dates: start: 20200128, end: 20200131
  9. MAGNESIUM [Concomitant]
     Active Substance: MAGNESIUM
     Indication: Arrhythmia prophylaxis
     Route: 042
     Dates: start: 20200128, end: 20200131
  10. CLOPIDOGREL [Concomitant]
     Active Substance: CLOPIDOGREL BISULFATE
     Indication: Thrombosis prophylaxis
     Route: 048
     Dates: start: 20200128, end: 20200131
  11. CLOPIDOGREL [Concomitant]
     Active Substance: CLOPIDOGREL BISULFATE
     Indication: Hypercholesterolaemia
  12. ACETAMINOPHEN [Concomitant]
     Active Substance: ACETAMINOPHEN
     Indication: Analgesic therapy
     Route: 048
     Dates: start: 20200128, end: 20200131
  13. Pyralgium [Concomitant]
     Indication: Analgesic therapy
     Route: 048
     Dates: start: 20200128, end: 20200131
  14. SIMVASTATIN [Concomitant]
     Active Substance: SIMVASTATIN
     Indication: Hypercholesterolaemia
     Route: 048
     Dates: start: 20200128, end: 20200131
  15. ATORVASTATIN [Concomitant]
     Active Substance: ATORVASTATIN
     Indication: Hypercholesterolaemia
     Route: 048
     Dates: start: 20200128, end: 20200131
  16. NITROGLYCERIN [Concomitant]
     Active Substance: NITROGLYCERIN
     Indication: Atrial fibrillation
     Route: 042
     Dates: start: 20200125, end: 20200125
  17. NEBIVOLOL [Concomitant]
     Active Substance: NEBIVOLOL
     Indication: Hypertension
     Route: 048
     Dates: start: 20200131, end: 20210823
  18. NEBIVOLOL [Concomitant]
     Active Substance: NEBIVOLOL
     Route: 048
     Dates: start: 20210824
  19. PERINDOPRIL [Concomitant]
     Active Substance: PERINDOPRIL
     Indication: Hypertension
     Route: 048
     Dates: start: 20170526
  20. VITRUM D3-COLECALCIFEROL [Concomitant]
     Indication: Osteoporosis prophylaxis
     Dosage: 1
     Route: 048
     Dates: start: 20160303
  21. EZEN (EZETIMIBE) [Concomitant]
     Indication: Prophylaxis
     Route: 048
     Dates: start: 20210329
  22. EPLENOCARD [Concomitant]
     Indication: Prophylaxis
     Route: 048
     Dates: start: 20210329
  23. XARELTO [Concomitant]
     Active Substance: RIVAROXABAN
     Indication: Prophylaxis
     Route: 048

REACTIONS (5)
  - Acute myocardial infarction [Recovered/Resolved]
  - Respiratory failure [Recovered/Resolved]
  - Atrial fibrillation [Recovered/Resolved]
  - Atrial fibrillation [Recovered/Resolved]
  - Coronary artery disease [Not Recovered/Not Resolved]

NARRATIVE: CASE EVENT DATE: 20200125
